FAERS Safety Report 25143154 (Version 1)
Quarter: 2025Q2

REPORT INFORMATION
  Report Type: Spontaneous
  Country: CN (occurrence: CN)
  Receive Date: 20250401
  Receipt Date: 20250401
  Transmission Date: 20250716
  Serious: Yes (Hospitalization)
  Sender: ROCHE
  Company Number: CN-ROCHE-10000240348

PATIENT
  Age: 71 Year
  Sex: Male

DRUGS (2)
  1. VABYSMO [Suspect]
     Active Substance: FARICIMAB-SVOA
     Indication: Polypoidal choroidal vasculopathy
     Route: 065
  2. RANIBIZUMAB [Concomitant]
     Active Substance: RANIBIZUMAB

REACTIONS (2)
  - Eye disorder [Unknown]
  - Off label use [Unknown]
